FAERS Safety Report 14669174 (Version 1)
Quarter: 2018Q1

REPORT INFORMATION
  Report Type: Spontaneous
  Country: US (occurrence: US)
  Receive Date: 20180322
  Receipt Date: 20180322
  Transmission Date: 20180509
  Serious: Yes (Hospitalization)
  Sender: FDA-Public Use
  Company Number: US-TEVA-2018-US-873007

PATIENT
  Age: 43 Year
  Sex: Male

DRUGS (2)
  1. MYCOPHENOLATE MOFETIL. [Suspect]
     Active Substance: MYCOPHENOLATE MOFETIL
     Indication: DERMATITIS CONTACT
     Route: 065
  2. PREDNISONE. [Suspect]
     Active Substance: PREDNISONE
     Indication: DERMATITIS CONTACT
     Dosage: INITIAL DOSAGE UNKNOWN; HOWEVER, HE REMAINED ON 15MG DAILY
     Route: 048

REACTIONS (4)
  - Molluscum contagiosum [Unknown]
  - Cellulitis [Unknown]
  - Lymphopenia [Not Recovered/Not Resolved]
  - Pneumonia [Not Recovered/Not Resolved]
